FAERS Safety Report 16150008 (Version 1)
Quarter: 2019Q2

REPORT INFORMATION
  Report Type: Spontaneous
  Country: MX (occurrence: MX)
  Receive Date: 20190403
  Receipt Date: 20190403
  Transmission Date: 20190711
  Serious: Yes (Other)
  Sender: FDA-Public Use
  Company Number: MX-PFIZER INC-2019144384

PATIENT

DRUGS (2)
  1. IBRANCE [Suspect]
     Active Substance: PALBOCICLIB
     Dosage: 125 MG, CYCLIC
     Dates: start: 201812
  2. FEMARA [Concomitant]
     Active Substance: LETROZOLE

REACTIONS (2)
  - Neutropenia [Unknown]
  - Electrocardiogram QT prolonged [Unknown]
